FAERS Safety Report 25341200 (Version 1)
Quarter: 2025Q2

REPORT INFORMATION
  Report Type: Report from Study
  Country: US (occurrence: US)
  Receive Date: 20250521
  Receipt Date: 20250521
  Transmission Date: 20250716
  Serious: Yes (Hospitalization, Other)
  Sender: RHYTHM PHARMACEUTICALS
  Company Number: US-RHYTHM PHARMACEUTICALS, INC.-2023RHM000142

PATIENT
  Sex: Female

DRUGS (6)
  1. SETMELANOTIDE [Suspect]
     Active Substance: SETMELANOTIDE
     Indication: Laurence-Moon-Bardet-Biedl syndrome
     Route: 058
     Dates: start: 20230320
  2. SETMELANOTIDE [Suspect]
     Active Substance: SETMELANOTIDE
     Dosage: 3 MILLIGRAM, QD
     Route: 058
  3. SETMELANOTIDE [Suspect]
     Active Substance: SETMELANOTIDE
     Route: 058
     Dates: start: 20230507
  4. SETMELANOTIDE [Suspect]
     Active Substance: SETMELANOTIDE
     Dosage: 1 MILLIGRAM, QD
     Route: 058
  5. SETMELANOTIDE [Suspect]
     Active Substance: SETMELANOTIDE
     Route: 058
  6. SETMELANOTIDE [Suspect]
     Active Substance: SETMELANOTIDE
     Route: 058

REACTIONS (10)
  - Pyrexia [Recovered/Resolved]
  - Renal failure [Not Recovered/Not Resolved]
  - Tonsillectomy [Recovered/Resolved]
  - Hospitalisation [Not Recovered/Not Resolved]
  - Hunger [Not Recovered/Not Resolved]
  - Intentional product use issue [Unknown]
  - Inappropriate schedule of product administration [Not Recovered/Not Resolved]
  - Product dose omission issue [Not Recovered/Not Resolved]
  - Skin hyperpigmentation [Not Recovered/Not Resolved]
  - Hair colour changes [Not Recovered/Not Resolved]
